FAERS Safety Report 18615582 (Version 1)
Quarter: 2020Q4

REPORT INFORMATION
  Report Type: Spontaneous
  Country: JP (occurrence: JP)
  Receive Date: 20201214
  Receipt Date: 20201214
  Transmission Date: 20210114
  Serious: Yes (Other)
  Sender: FDA-Public Use
  Company Number: NVSJ2020JP013050

PATIENT
  Age: 70 Year
  Sex: Male

DRUGS (1)
  1. PAZOPANIB [Suspect]
     Active Substance: PAZOPANIB
     Indication: RENAL CELL CARCINOMA
     Dosage: 400 MG
     Route: 065

REACTIONS (4)
  - Jaundice [Unknown]
  - Cholecystitis [Unknown]
  - Drug-induced liver injury [Unknown]
  - Blood bilirubin increased [Unknown]
